FAERS Safety Report 5572445-8 (Version None)
Quarter: 2007Q4

REPORT INFORMATION
  Report Type: 
  Country: None (occurrence: None)
  Receive Date: 20071219
  Receipt Date: 20071205
  Transmission Date: 20080405
  Serious: Yes (Hospitalization, Other)
  Sender: FDA-Public Use
  Company Number: 062-20785-07110991

PATIENT
  Age: 60 Year
  Sex: Male

DRUGS (7)
  1. THALIDOMIDE [Suspect]
     Indication: PROSTATE CANCER METASTATIC
     Dosage: 100 MG, 2 IN 1 D, ORAL
     Route: 048
     Dates: start: 20070921
  2. ESOMEPRAZOLE (ESOMEPRAZOLE) [Concomitant]
  3. LERCANIDIPINE [Concomitant]
  4. ISOSORBIDE DINITRATE [Concomitant]
  5. ESTRAMUST INPHOSPHATE (ESTRAMUSTINE PHOSPHATE) [Concomitant]
  6. MOVICOL (NULYTELY) [Concomitant]
  7. ZOLEDRONIC ACID [Concomitant]

REACTIONS (4)
  - CONVULSIVE THRESHOLD LOWERED [None]
  - EPILEPSY [None]
  - HEMIPARESIS [None]
  - OEDEMA PERIPHERAL [None]
